FAERS Safety Report 9507357 (Version 1)
Quarter: 2013Q3

REPORT INFORMATION
  Report Type: Report from Study
  Country: JP (occurrence: JP)
  Receive Date: 20130909
  Receipt Date: 20130909
  Transmission Date: 20140515
  Serious: Yes (Death, Hospitalization)
  Sender: FDA-Public Use
  Company Number: JP-GENZYME-THYM-1004091

PATIENT
  Age: 35 Year
  Sex: Male
  Weight: 72 kg

DRUGS (7)
  1. THYMOGLOBULIN [Suspect]
     Indication: APLASTIC ANAEMIA
     Dosage: 250 MG, QD
     Route: 065
     Dates: start: 20120723, end: 20120727
  2. NEORAL [Concomitant]
     Indication: APLASTIC ANAEMIA
     Dosage: UNK
     Route: 065
     Dates: end: 20120730
  3. EXJADE [Concomitant]
     Indication: HAEMOCHROMATOSIS
     Dosage: UNK
     Route: 065
     Dates: end: 20120730
  4. GASTER D [Concomitant]
     Indication: PROPHYLAXIS
     Dosage: UNK
     Route: 065
     Dates: start: 20120723, end: 20120730
  5. PRIDOL [Concomitant]
     Indication: PROPHYLAXIS
     Dosage: UNK
     Route: 065
     Dates: start: 20120723, end: 20120727
  6. NEUTROGIN [Concomitant]
     Indication: INFECTION PROPHYLAXIS
     Dosage: UNK
     Route: 065
     Dates: start: 20120723, end: 20121005
  7. STRONGER NEO MINOPHAGEN C [Concomitant]
     Indication: LIVER DISORDER
     Dosage: UNK
     Route: 065
     Dates: start: 20120723, end: 20120727

REACTIONS (7)
  - Shock [Fatal]
  - Pseudomonal sepsis [Fatal]
  - Meningitis bacterial [Fatal]
  - Herpes simplex meningoencephalitis [Fatal]
  - Hydrocephalus [Not Recovered/Not Resolved]
  - Hypoalbuminaemia [Unknown]
  - Candida infection [Not Recovered/Not Resolved]
